FAERS Safety Report 22192560 (Version 1)
Quarter: 2023Q2

REPORT INFORMATION
  Report Type: Report from Study
  Country: JP (occurrence: None)
  Receive Date: 20230410
  Receipt Date: 20230410
  Transmission Date: 20230722
  Serious: Yes (Disabling, Other)
  Sender: FDA-Public Use
  Company Number: JP-Merck Healthcare KGaA-9394066

PATIENT
  Age: 81 Year
  Sex: Male

DRUGS (3)
  1. BAVENCIO [Suspect]
     Active Substance: AVELUMAB
     Indication: Bladder cancer
     Route: 041
  2. PADCEV [Suspect]
     Active Substance: ENFORTUMAB VEDOTIN-EJFV
     Indication: Bladder cancer
     Dates: end: 20230125
  3. SODIUM FERROUS CITRATE [Suspect]
     Active Substance: SODIUM FERROUS CITRATE
     Indication: Bladder cancer
     Dates: end: 20230317

REACTIONS (2)
  - Hepatic function abnormal [Not Recovered/Not Resolved]
  - Cholangitis sclerosing [Unknown]

NARRATIVE: CASE EVENT DATE: 20230331
